FAERS Safety Report 5324947-7 (Version None)
Quarter: 2007Q2

REPORT INFORMATION
  Report Type: 
  Country: None (occurrence: None)
  Receive Date: 20070509
  Receipt Date: 20070430
  Transmission Date: 20071010
  Serious: Yes (Death, Other)
  Sender: FDA-Public Use
  Company Number: 163-21880-07040493

PATIENT
  Age: 78 Year
  Sex: Male

DRUGS (16)
  1. REVLIMID [Suspect]
     Indication: THYROID CANCER
     Dosage: 10 MG, 1 IN 1 D, ORAL
     Route: 048
     Dates: start: 20070115, end: 20070406
  2. REVLIMID [Suspect]
     Indication: THYROID CANCER
     Dosage: 10 MG, 1 IN 1 D, ORAL
     Route: 048
     Dates: start: 20070201, end: 20070406
  3. SYNTHROID (LEVOTHYROXIN SODIUM0 [Concomitant]
  4. NEXIUM [Concomitant]
  5. ALTACE [Concomitant]
  6. FLOMAX [Concomitant]
  7. METFORMIN HCL [Concomitant]
  8. TOPROL-XL [Concomitant]
  9. LASIX [Concomitant]
  10. POTASSIUM (POTASSIUM) [Concomitant]
  11. LORTAB [Concomitant]
  12. ASPIRIN [Concomitant]
  13. ATIVAN [Concomitant]
  14. LEXAPRO [Concomitant]
  15. LOVENOX [Concomitant]
  16. ICAR-C (IRON PENTACARBONYL) [Concomitant]

REACTIONS (8)
  - ABASIA [None]
  - ASTHENIA [None]
  - CARDIAC FAILURE [None]
  - DISEASE PROGRESSION [None]
  - GENERAL PHYSICAL HEALTH DETERIORATION [None]
  - OCULAR HYPERAEMIA [None]
  - PERFORMANCE STATUS DECREASED [None]
  - RED BLOOD CELL COUNT DECREASED [None]
